FAERS Safety Report 5491859-8 (Version None)
Quarter: 2007Q4

REPORT INFORMATION
  Report Type: 
  Country: None (occurrence: None)
  Receive Date: 20071022
  Receipt Date: 20071010
  Transmission Date: 20080405
  Serious: Yes (Hospitalization, Other)
  Sender: FDA-Public Use
  Company Number: PHRM2007FR02380

PATIENT
  Age: 70 Year
  Sex: Female

DRUGS (3)
  1. BENZODIAZEPINES [Suspect]
     Route: 048
     Dates: end: 20071011
  2. ANTIPSYCHOTICS [Suspect]
     Route: 048
     Dates: end: 20071011
  3. RECLAST [Suspect]
     Dates: start: 20071008, end: 20071008

REACTIONS (8)
  - ABASIA [None]
  - BLOOD CREATINE PHOSPHOKINASE INCREASED [None]
  - BLOOD PHOSPHORUS DECREASED [None]
  - CONFUSIONAL STATE [None]
  - DRUG WITHDRAWAL SYNDROME [None]
  - HYPONATRAEMIA [None]
  - MYALGIA [None]
  - PYREXIA [None]
